FAERS Safety Report 6582632-8 (Version None)
Quarter: 2010Q1

REPORT INFORMATION
  Report Type: 
  Country: None (occurrence: None)
  Receive Date: 20100203
  Receipt Date: 20100125
  Transmission Date: 20100710
  Serious: Yes (Other)
  Sender: FDA-Public Use
  Company Number: 1000011487

PATIENT
  Age: 77 Year
  Sex: Female

DRUGS (9)
  1. NAMENDA [Suspect]
     Indication: DEMENTIA ALZHEIMER'S TYPE
     Dosage: SEE IMAGE
     Route: 048
     Dates: start: 20040325, end: 20040331
  2. NAMENDA [Suspect]
     Indication: DEMENTIA ALZHEIMER'S TYPE
     Dosage: SEE IMAGE
     Route: 048
     Dates: start: 20040401, end: 20040407
  3. NAMENDA [Suspect]
     Indication: DEMENTIA ALZHEIMER'S TYPE
     Dosage: SEE IMAGE
     Route: 048
     Dates: start: 20040408, end: 20040414
  4. NAMENDA [Suspect]
     Indication: DEMENTIA ALZHEIMER'S TYPE
     Dosage: SEE IMAGE
     Route: 048
     Dates: start: 20040415
  5. ARICEPT [Concomitant]
  6. SIMVASTATIN (40 MILLIGRAM, TABLETS) [Concomitant]
  7. PROZAC (20 MILLIGRAM, TABLETS) [Concomitant]
  8. ULTRAM ER (200 MILLIGRAM, TABLETS) [Concomitant]
  9. ALTACE (5 MILLIGRAM, TABLETS) [Concomitant]

REACTIONS (5)
  - ABDOMINAL PAIN [None]
  - ARTHRITIS [None]
  - GALLBLADDER DISORDER [None]
  - GLAUCOMA [None]
  - UTERINE MASS [None]
